FAERS Safety Report 5588097-7 (Version None)
Quarter: 2008Q1

REPORT INFORMATION
  Report Type: 
  Country: None (occurrence: None)
  Receive Date: 20080108
  Receipt Date: 20071228
  Transmission Date: 20080703
  Serious: Yes (Death, Life-Threatening)
  Sender: FDA-Public Use
  Company Number: 2007SP015343

PATIENT
  Age: 20 Year
  Sex: Male
  Weight: 52 kg

DRUGS (22)
  1. TEMODAL [Suspect]
     Indication: OLIGODENDROGLIOMA
     Dosage: PO ; 150 MG/M2; QD PO
     Route: 048
     Dates: start: 20060824, end: 20060828
  2. TEMODAL [Suspect]
     Indication: OLIGODENDROGLIOMA
     Dosage: PO ; 150 MG/M2; QD PO
     Route: 048
     Dates: start: 20061120, end: 20061124
  3. BAKTAR [Concomitant]
  4. NASEA-OD [Concomitant]
  5. DECADRON [Concomitant]
  6. GASTER [Concomitant]
  7. MAGMITT [Concomitant]
  8. PREDONINE [Concomitant]
  9. METHOTREXATE [Concomitant]
  10. SEISHOKU [Concomitant]
  11. VANCOMYCIN [Concomitant]
  12. ROCEPHIN [Concomitant]
  13. TPN [Concomitant]
  14. SODIUM CHLORIDE INJ [Concomitant]
  15. PANTOL [Concomitant]
  16. PRIMPERAN INJ [Concomitant]
  17. LEUCOVORIN [Concomitant]
  18. SOLDEM 3A [Concomitant]
  19. MEYLON [Concomitant]
  20. SOLU-MEDROL [Concomitant]
  21. KYTRIL [Concomitant]
  22. DIAMOX SRC [Concomitant]

REACTIONS (7)
  - DISSEMINATED INTRAVASCULAR COAGULATION [None]
  - GASTRIC PERFORATION [None]
  - HEPATIC FUNCTION ABNORMAL [None]
  - MENINGEAL DISORDER [None]
  - METASTASES TO LIVER [None]
  - METASTASES TO LUNG [None]
  - METASTASES TO SKIN [None]
